FAERS Safety Report 6317157-8 (Version None)
Quarter: 2009Q3

REPORT INFORMATION
  Report Type: 
  Country: None (occurrence: None)
  Receive Date: 20090819
  Receipt Date: 20090804
  Transmission Date: 20100115
  Serious: Yes (Hospitalization)
  Sender: FDA-Public Use
  Company Number: 2008-177916-NL

PATIENT
  Age: 38 Year
  Sex: Female
  Weight: 74.8 kg

DRUGS (8)
  1. NUVARING [Suspect]
     Indication: DRUG USE FOR UNKNOWN INDICATION
     Dosage: 1 DF; ; VAG
     Route: 067
     Dates: start: 20070301, end: 20070521
  2. ALBUTEROL [Concomitant]
  3. PULMICORT-100 [Concomitant]
  4. FLONASE [Concomitant]
  5. VALTREX [Concomitant]
  6. WELLBUTRIN [Concomitant]
  7. CYMBALTA [Concomitant]
  8. LUNESTA [Concomitant]

REACTIONS (17)
  - ARTHRALGIA [None]
  - BACK PAIN [None]
  - CHEST PAIN [None]
  - COMPARTMENT SYNDROME [None]
  - COUGH [None]
  - DEEP VEIN THROMBOSIS [None]
  - DIZZINESS [None]
  - DYSPNOEA [None]
  - HYPOAESTHESIA [None]
  - ILIAC VEIN OCCLUSION [None]
  - OEDEMA PERIPHERAL [None]
  - PAIN IN EXTREMITY [None]
  - PARAESTHESIA [None]
  - PELVIC VENOUS THROMBOSIS [None]
  - POST THROMBOTIC SYNDROME [None]
  - SKIN DISCOLOURATION [None]
  - URINARY TRACT INFECTION [None]
